FAERS Safety Report 6681031-8 (Version None)
Quarter: 2010Q2

REPORT INFORMATION
  Report Type: 
  Country: None (occurrence: None)
  Receive Date: 20100414
  Receipt Date: 20100401
  Transmission Date: 20101027
  Serious: Yes (Other)
  Sender: FDA-Public Use
  Company Number: US-JNJFOC-20100202851

PATIENT
  Age: 4 Year
  Sex: Female

DRUGS (2)
  1. JUNIOR STRENGTH MOTRIN [Suspect]
  2. JUNIOR STRENGTH MOTRIN [Suspect]
     Indication: PYREXIA

REACTIONS (5)
  - DEHYDRATION [None]
  - DIARRHOEA [None]
  - PRODUCT QUALITY ISSUE [None]
  - VOMITING [None]
  - WRONG DRUG ADMINISTERED [None]
